FAERS Safety Report 20098566 (Version 2)
Quarter: 2022Q3

REPORT INFORMATION
  Report Type: Spontaneous
  Country: CA (occurrence: CA)
  Receive Date: 20211122
  Receipt Date: 20220713
  Transmission Date: 20221026
  Serious: Yes (Other)
  Sender: FDA-Public Use
  Company Number: CA-PFIZER INC-202101548712

PATIENT
  Age: 27 Year
  Sex: Male

DRUGS (4)
  1. MIDAZOLAM [Suspect]
     Active Substance: MIDAZOLAM
     Indication: Sedation
     Dosage: 1 MG/ML
     Route: 042
  2. BUTYLSCOPOLAMINE BROMIDE [Concomitant]
     Active Substance: BUTYLSCOPOLAMINE BROMIDE
  3. CEPHALEXIN [Concomitant]
     Active Substance: CEPHALEXIN
  4. FENTANYL [Concomitant]
     Active Substance: FENTANYL

REACTIONS (1)
  - Oxygen saturation decreased [Unknown]
